FAERS Safety Report 9884099 (Version 1)
Quarter: 2014Q1

REPORT INFORMATION
  Report Type: Spontaneous
  Country: US (occurrence: None)
  Receive Date: 20140207
  Receipt Date: 20140207
  Transmission Date: 20141002
  Serious: Yes (Life-Threatening, Hospitalization, Other)
  Sender: FDA-Public Use
  Company Number: None

PATIENT
  Age: 31 Year
  Sex: Female
  Weight: 48.08 kg

DRUGS (1)
  1. MEFLOQUINE [Suspect]
     Indication: BABESIOSIS
     Dosage: 3 TABLETS ONCE A WEEK TAKEN BY MOUTH
     Route: 048
     Dates: start: 20140119, end: 20140119

REACTIONS (9)
  - Dizziness [None]
  - Dizziness [None]
  - Nausea [None]
  - Balance disorder [None]
  - Panic attack [None]
  - Palpitations [None]
  - Bedridden [None]
  - Homicidal ideation [None]
  - Suicidal ideation [None]
